FAERS Safety Report 7798955-0 (Version None)
Quarter: 2011Q4

REPORT INFORMATION
  Report Type: 
  Country: None (occurrence: None)
  Receive Date: 20111006
  Receipt Date: 20110816
  Transmission Date: 20120403
  Serious: No
  Sender: FDA-Public Use
  Company Number: US-ASTRAZENECA-2011SE49150

PATIENT

DRUGS (1)
  1. NEXIUM [Suspect]
     Dosage: MIXING IT WITH WATER
     Route: 048

REACTIONS (2)
  - DRUG INTOLERANCE [None]
  - WRONG TECHNIQUE IN DRUG USAGE PROCESS [None]
